FAERS Safety Report 23024097 (Version 2)
Quarter: 2023Q4

REPORT INFORMATION
  Report Type: Spontaneous
  Country: PT (occurrence: PT)
  Receive Date: 20231004
  Receipt Date: 20231017
  Transmission Date: 20240110
  Serious: Yes (Other)
  Sender: FDA-Public Use
  Company Number: PT-PFIZER INC-PV202300160372

PATIENT
  Age: 32 Year
  Sex: Female

DRUGS (9)
  1. REMICADE [Suspect]
     Active Substance: INFLIXIMAB
     Indication: Crohn^s disease
     Dosage: UNK
     Route: 041
     Dates: start: 202009, end: 202209
  2. REMICADE [Suspect]
     Active Substance: INFLIXIMAB
     Dosage: UNK
     Route: 041
     Dates: start: 20230317, end: 20230317
  3. REMICADE [Suspect]
     Active Substance: INFLIXIMAB
     Dosage: 300 MILLIGRAM, EVERY TOTAL
     Route: 041
     Dates: start: 20230626, end: 20230626
  4. REMICADE [Suspect]
     Active Substance: INFLIXIMAB
     Dosage: 120 MG, EVERY 15 DAYS
     Route: 058
     Dates: start: 20230714
  5. REMICADE [Suspect]
     Active Substance: INFLIXIMAB
     Dosage: UNK
     Route: 058
     Dates: start: 202209, end: 20230127
  6. REMICADE [Suspect]
     Active Substance: INFLIXIMAB
     Dosage: UNK
     Route: 058
     Dates: start: 20230414, end: 20230414
  7. AZATHIOPRINE [Suspect]
     Active Substance: AZATHIOPRINE
     Indication: Product used for unknown indication
     Dosage: 50 MILLIGRAM / VOLUNTARY DISCONTINUATION OF THERAPY
     Route: 048
     Dates: start: 202009
  8. INFLIXIMAB [Suspect]
     Active Substance: INFLIXIMAB
     Indication: Crohn^s disease
     Dosage: 120 MG, EVERY 15 DAYS
     Route: 058
     Dates: start: 20230414
  9. INFLIXIMAB [Suspect]
     Active Substance: INFLIXIMAB
     Route: 058
     Dates: start: 202209, end: 20230127

REACTIONS (7)
  - Crohn^s disease [Recovered/Resolved]
  - Injection site erythema [Recovered/Resolved]
  - Administration site pruritus [Recovered/Resolved]
  - Local reaction [Recovered/Resolved]
  - Off label use [Unknown]
  - Drug specific antibody absent [Unknown]
  - Drug level below therapeutic [Unknown]

NARRATIVE: CASE EVENT DATE: 20230127
